FAERS Safety Report 10662988 (Version 3)
Quarter: 2015Q1

REPORT INFORMATION
  Report Type: Report from Study
  Country: JP (occurrence: JP)
  Receive Date: 20141218
  Receipt Date: 20150220
  Transmission Date: 20150720
  Serious: Yes (Death)
  Sender: FDA-Public Use
  Company Number: JP-ABBVIE-14P-087-1212006-00

PATIENT
  Age: 63 Year
  Sex: Male
  Weight: 65.4 kg

DRUGS (2)
  1. LIPACREON CAPSULES 150MG [Suspect]
     Active Substance: PANCRELIPASE
     Indication: PANCREATIC INSUFFICIENCY
     Route: 048
     Dates: start: 20130603, end: 20140829
  2. RABEPRAZOLE SODIUM. [Concomitant]
     Active Substance: RABEPRAZOLE SODIUM
     Indication: PANCREATIC INSUFFICIENCY
     Route: 048
     Dates: end: 20140829

REACTIONS (1)
  - Pancreatic carcinoma [Fatal]

NARRATIVE: CASE EVENT DATE: 20130809
